FAERS Safety Report 6915787-3 (Version None)
Quarter: 2010Q3

REPORT INFORMATION
  Report Type: 
  Country: None (occurrence: None)
  Receive Date: 20100810
  Receipt Date: 20100219
  Transmission Date: 20110219
  Serious: No
  Sender: FDA-Public Use
  Company Number: A0845465A

PATIENT
  Age: 35 Year
  Sex: Female

DRUGS (2)
  1. PAXIL [Suspect]
     Route: 048
     Dates: start: 20040101, end: 20060101
  2. NO CONCURRENT MEDICATION [Concomitant]

REACTIONS (7)
  - ECONOMIC PROBLEM [None]
  - FLAT AFFECT [None]
  - MEMORY IMPAIRMENT [None]
  - MENTAL DISORDER [None]
  - PERFORMANCE STATUS DECREASED [None]
  - TINNITUS [None]
  - WEIGHT INCREASED [None]
